FAERS Safety Report 9097729 (Version 4)
Quarter: 2013Q2

REPORT INFORMATION
  Report Type: Spontaneous
  Country: JP (occurrence: JP)
  Receive Date: 20130212
  Receipt Date: 20130604
  Transmission Date: 20140414
  Serious: Yes (Hospitalization, Other)
  Sender: FDA-Public Use
  Company Number: PHHY2013JP012814

PATIENT
  Age: 26 Year
  Sex: Female

DRUGS (10)
  1. CLOZARIL [Suspect]
     Indication: SCHIZOPHRENIA
     Dosage: 150 MG DAILY
     Route: 048
     Dates: start: 20120515, end: 20120611
  2. RISPERDAL [Concomitant]
     Dosage: 2 MG
     Route: 048
     Dates: start: 20120619
  3. RISPERDAL [Concomitant]
     Dosage: 4 MG
     Route: 048
  4. RISPERDAL [Concomitant]
     Dosage: 6 MG
     Route: 048
  5. RISPERDAL [Concomitant]
     Dosage: 8 MG
     Route: 048
  6. DEPAKENE [Concomitant]
     Indication: SCHIZOPHRENIA, PARANOID TYPE
     Dosage: 100 MG
     Route: 048
  7. AKINETON//BIPERIDEN HYDROCHLORIDE [Concomitant]
     Indication: SCHIZOPHRENIA, PARANOID TYPE
     Dosage: 2 MG
     Route: 048
  8. LEXOTAN [Concomitant]
     Indication: SCHIZOPHRENIA, PARANOID TYPE
     Dosage: 8 MG
     Route: 048
  9. BENZALIN [Concomitant]
     Indication: SCHIZOPHRENIA, PARANOID TYPE
     Dosage: 5 MG
     Route: 048
  10. LANDSEN [Concomitant]
     Indication: SCHIZOPHRENIA, PARANOID TYPE
     Dosage: 1 MG
     Route: 048
     Dates: start: 20120801

REACTIONS (8)
  - Pleurisy [Recovered/Resolved]
  - Pneumonia [Recovered/Resolved]
  - Pyrexia [Recovered/Resolved]
  - Cough [Recovering/Resolving]
  - C-reactive protein increased [Unknown]
  - Pleural effusion [Unknown]
  - Dyspnoea [Unknown]
  - Salivary hypersecretion [Unknown]
